FAERS Safety Report 17276222 (Version 1)
Quarter: 2020Q1

REPORT INFORMATION
  Report Type: Spontaneous
  Country: US (occurrence: US)
  Receive Date: 20200116
  Receipt Date: 20200116
  Transmission Date: 20200409
  Serious: No
  Sender: FDA-Public Use
  Company Number: US-TEVA-2020-US-1168719

PATIENT
  Sex: Male

DRUGS (1)
  1. LORAZEPAM TEVA [Suspect]
     Active Substance: LORAZEPAM
     Route: 065

REACTIONS (2)
  - Drug ineffective [Unknown]
  - Product dosage form issue [Unknown]
